FAERS Safety Report 22219665 (Version 1)
Quarter: 2023Q2

REPORT INFORMATION
  Report Type: Spontaneous
  Country: DE (occurrence: DE)
  Receive Date: 20230417
  Receipt Date: 20230417
  Transmission Date: 20230721
  Serious: Yes (Hospitalization, Disabling, Other)
  Sender: FDA-Public Use
  Company Number: DE-002147023-NVSC2023DE083886

PATIENT
  Sex: Male
  Weight: 150 kg

DRUGS (18)
  1. VALSARTAN [Suspect]
     Active Substance: VALSARTAN
     Indication: Hypertension
     Dosage: UNK UNK, QD, (IN THE MORNING)
     Route: 065
     Dates: start: 201707, end: 201710
  2. VALSARTAN [Suspect]
     Active Substance: VALSARTAN
     Dosage: UNK, QD, (IN THE MORNING)
     Route: 065
     Dates: start: 201801, end: 201804
  3. VALSARTAN [Suspect]
     Active Substance: VALSARTAN
     Indication: Product used for unknown indication
     Dosage: UNK UNK, QD, (IN THE MORNING)
     Route: 065
     Dates: start: 201710, end: 201801
  4. VALSARTAN [Suspect]
     Active Substance: VALSARTAN
     Dosage: UNK
     Route: 065
     Dates: start: 201804, end: 201807
  5. ARCOXIA [Concomitant]
     Active Substance: ETORICOXIB
     Indication: Product used for unknown indication
     Dosage: 1 DOSAGE FORM, TID, (ONCE IN THE MORNING, ONCE AT NOON, ONCE IN THE EVENING)
     Route: 065
     Dates: start: 201912, end: 201912
  6. ALLOPURINOL [Concomitant]
     Active Substance: ALLOPURINOL
     Indication: Product used for unknown indication
     Dosage: UNK, QD, (100, IN EVENING)
     Route: 065
     Dates: start: 201906
  7. NITRENDIPINE [Concomitant]
     Active Substance: NITRENDIPINE
     Indication: Product used for unknown indication
     Dosage: UNK
     Route: 060
     Dates: start: 201910
  8. FUROSEMIDE [Concomitant]
     Active Substance: FUROSEMIDE
     Indication: Product used for unknown indication
     Dosage: UNK, QD, IN THE MORNING (1-0-0)
     Route: 065
     Dates: start: 201910
  9. NASIC CUR [Concomitant]
     Indication: Product used for unknown indication
     Dosage: UNK, (AS NEEDED)
     Route: 065
     Dates: start: 201911
  10. DIMETHINDENE [Concomitant]
     Active Substance: DIMETHINDENE
     Indication: Pruritus
     Dosage: UNK, (AS NEEDED)
     Route: 065
     Dates: start: 201912
  11. PROPOFOL [Concomitant]
     Active Substance: PROPOFOL
     Indication: Endoscopy
     Dosage: 280 MG
     Route: 065
     Dates: start: 20191213, end: 20191213
  12. PROPOFOL [Concomitant]
     Active Substance: PROPOFOL
     Indication: Biopsy bone marrow
     Dosage: 310 MG
     Route: 065
     Dates: start: 20191218, end: 20191218
  13. MEPIVACAINE HYDROCHLORIDE [Concomitant]
     Active Substance: MEPIVACAINE HYDROCHLORIDE
     Indication: Product used for unknown indication
     Dosage: UNK, (15 ML WITH 1%)
     Route: 065
     Dates: start: 20191218, end: 20191218
  14. OXYGEN [Concomitant]
     Active Substance: OXYGEN
     Indication: Biopsy bone marrow
     Dosage: UNK, (2 L UP TO 6 L)
     Route: 065
     Dates: start: 20191218, end: 20191218
  15. LASIX [Concomitant]
     Active Substance: FUROSEMIDE
     Indication: Product used for unknown indication
     Dosage: 1 DOSAGE FORM, (ONCE DOSE IN THE MORNING, HALF OF A DOSE AT NOON (1-1/2-0))
     Route: 042
     Dates: start: 201912, end: 201912
  16. LASIX [Concomitant]
     Active Substance: FUROSEMIDE
     Dosage: 1 DOSAGE FORM, (20 MG)
     Route: 065
     Dates: start: 201912, end: 201912
  17. decortine [Concomitant]
     Indication: Product used for unknown indication
     Dosage: UNK
     Route: 065
     Dates: start: 201912, end: 201912
  18. JELLIPROCT [Concomitant]
     Indication: Product used for unknown indication
     Dosage: UNK
     Route: 065
     Dates: start: 201901

REACTIONS (37)
  - Dyspnoea exertional [Unknown]
  - Ventricular dysfunction [Unknown]
  - Heart sounds abnormal [Unknown]
  - Breathing-related sleep disorder [Unknown]
  - Ejection fraction abnormal [Unknown]
  - Blood thyroid stimulating hormone increased [Unknown]
  - Dyspnoea [Unknown]
  - Bundle branch block left [Unknown]
  - Leukaemia [Unknown]
  - Cardiac failure [Unknown]
  - Syncope [Unknown]
  - Cardiomegaly [Unknown]
  - B-lymphocyte count increased [Unknown]
  - Dilated cardiomyopathy [Unknown]
  - Pulmonary congestion [Unknown]
  - Hypertensive crisis [Unknown]
  - Renal pelvis fistula [Unknown]
  - Drug abuse [Recovered/Resolved]
  - Iron deficiency anaemia [Unknown]
  - Bronchitis [Unknown]
  - Cough [Recovering/Resolving]
  - Alcohol abuse [Recovered/Resolved]
  - Rash pruritic [Recovering/Resolving]
  - Fatigue [Recovering/Resolving]
  - Hyperhidrosis [Unknown]
  - Diastolic dysfunction [Unknown]
  - Gout [Unknown]
  - Spinal deformity [Unknown]
  - Haemorrhoids [Unknown]
  - Anal eczema [Unknown]
  - Microcytic anaemia [Unknown]
  - Muscle spasms [Unknown]
  - Rash [Unknown]
  - Gynaecomastia [Unknown]
  - Epistaxis [Unknown]
  - Autonomic nervous system imbalance [Unknown]
  - Oedema peripheral [Unknown]

NARRATIVE: CASE EVENT DATE: 20180101
